FAERS Safety Report 7253400-9 (Version None)
Quarter: 2011Q1

REPORT INFORMATION
  Report Type: 
  Country: None (occurrence: None)
  Receive Date: 20110129
  Receipt Date: 20100402
  Transmission Date: 20110831
  Serious: No
  Sender: FDA-Public Use
  Company Number: US-ABBOTT-10P-163-0629529-00

PATIENT
  Sex: Female

DRUGS (10)
  1. HUMIRA [Suspect]
     Indication: RHEUMATOID ARTHRITIS
     Route: 058
     Dates: start: 20090801, end: 20100101
  2. METOCLOPRAMIDE [Concomitant]
     Indication: PRODUCT USED FOR UNKNOWN INDICATION
  3. CELEBREX [Concomitant]
     Indication: FIBROMYALGIA
  4. ULTRACET [Concomitant]
     Indication: FIBROMYALGIA
     Dosage: ONE OR TWO TABLETS TWIC DAILY AS NEEDED
  5. PREMARIN [Concomitant]
     Indication: HORMONE REPLACEMENT THERAPY
  6. LYRICA [Concomitant]
     Indication: FIBROMYALGIA
  7. CELEBREX [Concomitant]
     Indication: RHEUMATOID ARTHRITIS
     Dosage: DAILY
  8. DARVOCET-N 100 [Concomitant]
     Indication: FIBROMYALGIA
  9. AZATHIOPRINE [Concomitant]
     Indication: SYSTEMIC LUPUS ERYTHEMATOSUS
     Dosage: DAILY
  10. DARVOCET-N 100 [Concomitant]
     Indication: RHEUMATOID ARTHRITIS
     Dosage: TAKES UP TO TWICE A DAY

REACTIONS (3)
  - INJECTION SITE EXFOLIATION [None]
  - INJECTION SITE DRYNESS [None]
  - INJECTION SITE ERYTHEMA [None]
